FAERS Safety Report 22528298 (Version 3)
Quarter: 2023Q4

REPORT INFORMATION
  Report Type: Spontaneous
  Country: US (occurrence: US)
  Receive Date: 20230607
  Receipt Date: 20231123
  Transmission Date: 20240110
  Serious: Yes (Other)
  Sender: FDA-Public Use
  Company Number: US-AMGEN-USASP2023094809

PATIENT
  Sex: Male

DRUGS (2)
  1. IVABRADINE [Suspect]
     Active Substance: IVABRADINE
     Indication: Ventricular extrasystoles
     Dosage: 0.1 MILLIGRAM/KILOGRAM/DOSE, BID
     Route: 065
  2. IVABRADINE [Suspect]
     Active Substance: IVABRADINE
     Indication: Off label use

REACTIONS (3)
  - Ventricular extrasystoles [Unknown]
  - Drug effective for unapproved indication [Unknown]
  - Off label use [Unknown]
